FAERS Safety Report 13245305 (Version 1)
Quarter: 2017Q1

REPORT INFORMATION
  Report Type: Spontaneous
  Country: US (occurrence: US)
  Receive Date: 20170217
  Receipt Date: 20170217
  Transmission Date: 20170428
  Serious: No
  Sender: FDA-Public Use
  Company Number: US-TEVA-734352ACC

PATIENT
  Sex: Female

DRUGS (2)
  1. COPAXONE [Suspect]
     Active Substance: GLATIRAMER ACETATE
     Indication: MULTIPLE SCLEROSIS
     Dosage: UNKNOWN FORM STRENGTH
  2. PROVIGIL [Concomitant]
     Active Substance: MODAFINIL
     Indication: FATIGUE

REACTIONS (10)
  - Discomfort [Unknown]
  - Skin lesion [Unknown]
  - Memory impairment [Unknown]
  - Abdominal rigidity [Unknown]
  - Depression [Unknown]
  - Pain [Unknown]
  - Muscle spasms [Unknown]
  - Nervousness [Unknown]
  - Dysphagia [Unknown]
  - Pruritus [Unknown]
